FAERS Safety Report 6113192-3 (Version None)
Quarter: 2009Q1

REPORT INFORMATION
  Report Type: 
  Country: None (occurrence: None)
  Receive Date: 20090312
  Receipt Date: 20090302
  Transmission Date: 20090719
  Serious: No
  Sender: FDA-Public Use
  Company Number: US-EISAI MEDIAL RESEARCH-E3810-02619-SPO-US

PATIENT
  Sex: Female
  Weight: 59 kg

DRUGS (2)
  1. ACIPHEX [Suspect]
     Indication: GASTROOESOPHAGEAL REFLUX DISEASE
     Route: 048
     Dates: start: 20090218, end: 20090228
  2. TRAZODONE HCL [Concomitant]

REACTIONS (1)
  - URTICARIA [None]
